FAERS Safety Report 5192144-4 (Version None)
Quarter: 2006Q4

REPORT INFORMATION
  Report Type: 
  Country: None (occurrence: None)
  Receive Date: 20061220
  Receipt Date: 20061205
  Transmission Date: 20070319
  Serious: Yes (Life-Threatening, Hospitalization, Other)
  Sender: FDA-Public Use
  Company Number: 2006BL006672

PATIENT
  Age: 17 Year
  Sex: Female
  Weight: 51 kg

DRUGS (10)
  1. DEXAMETHASONE [Suspect]
     Indication: DRUG USE FOR UNKNOWN INDICATION
     Dosage: 10 MILLIGRAMS PER SQUARE METER; ORAL
     Route: 048
  2. BACTRIM [Suspect]
     Indication: DRUG USE FOR UNKNOWN INDICATION
     Dosage: 480 MILLIGRAMS; ORAL
     Route: 048
     Dates: start: 20060701
  3. L-ASPARGINE (NO PREF. NAME) [Suspect]
     Indication: DRUG USE FOR UNKNOWN INDICATION
     Dosage: 1000 ; INTRAMUSCULAR
     Route: 030
  4. MERCAPTOPURINE [Suspect]
     Indication: DRUG USE FOR UNKNOWN INDICATION
     Dosage: 75 MILLIGRAMS PER SQUARE METER; ORAL
     Route: 048
  5. CYCLOSPORINE [Concomitant]
  6. CYTARABINE [Concomitant]
  7. DAUNORUBICIN HCL [Concomitant]
  8. DOXORUBICIN HCL [Concomitant]
  9. METHOTREXATE [Concomitant]
  10. VINCRISTINE [Concomitant]

REACTIONS (1)
  - PANCREATITIS [None]
